FAERS Safety Report 5986667-5 (Version None)
Quarter: 2008Q4

REPORT INFORMATION
  Report Type: 
  Country: None (occurrence: None)
  Receive Date: 20081209
  Receipt Date: 20081127
  Transmission Date: 20090506
  Serious: Yes (Hospitalization)
  Sender: FDA-Public Use
  Company Number: FR-ROCHE-600843

PATIENT
  Sex: Female

DRUGS (5)
  1. XELODA [Suspect]
     Indication: RECTAL CANCER
     Route: 048
     Dates: start: 20080901, end: 20080929
  2. APROVEL [Concomitant]
     Dosage: DRUG REPORTED AS APROVEL 150.
  3. VASTAREL [Concomitant]
     Dosage: DRUG REPORTED AS VASTAREL 35.
  4. COSOPT [Concomitant]
     Dosage: DRUG REPORTED AS COSOPT EYE DROPS
  5. MORPHINE [Concomitant]
     Dates: start: 20080929

REACTIONS (2)
  - ILEITIS [None]
  - INTESTINAL OBSTRUCTION [None]
